FAERS Safety Report 22091253 (Version 1)
Quarter: 2023Q1

REPORT INFORMATION
  Report Type: Spontaneous
  Country: US (occurrence: US)
  Receive Date: 20230314
  Receipt Date: 20230314
  Transmission Date: 20230418
  Serious: Yes (Other)
  Sender: FDA-Public Use
  Company Number: US-NOVOPROD-1035322

PATIENT
  Age: 55 Year
  Sex: Male

DRUGS (2)
  1. OZEMPIC [Suspect]
     Active Substance: SEMAGLUTIDE
     Indication: Diabetes mellitus
     Dosage: 0.5 MG
     Route: 058
     Dates: start: 2019
  2. TRESIBA [Suspect]
     Active Substance: INSULIN DEGLUDEC
     Indication: Diabetes mellitus
     Dosage: 50 IU, QD, AT BEDTIME
     Route: 058

REACTIONS (2)
  - Leg amputation [Not Recovered/Not Resolved]
  - Toe amputation [Not Recovered/Not Resolved]

NARRATIVE: CASE EVENT DATE: 20190101
